FAERS Safety Report 14472535 (Version 4)
Quarter: 2022Q3

REPORT INFORMATION
  Report Type: Spontaneous
  Country: DK (occurrence: DK)
  Receive Date: 20180201
  Receipt Date: 20220728
  Transmission Date: 20221027
  Serious: Yes (Other)
  Sender: FDA-Public Use
  Company Number: DK-EMA-DD-20180130-NEGIEVPROD-125438

PATIENT
  Sex: Female

DRUGS (11)
  1. METHOTREXATE [Suspect]
     Active Substance: METHOTREXATE
     Indication: Gestational trophoblastic tumour
     Dosage: 10 MG, QD (REPEATED EVERY 4 WEEKS (ALTERNATIVELY EVERY3 WEEKS))
     Route: 048
  2. METHOTREXATE [Suspect]
     Active Substance: METHOTREXATE
     Dosage: 2.5 MG, Q4W
     Route: 048
  3. METHOTREXATE [Suspect]
     Active Substance: METHOTREXATE
     Dosage: 2.5 MG, Q3W
     Route: 048
  4. METHOTREXATE [Suspect]
     Active Substance: METHOTREXATE
     Dosage: 2.5 MG, Q6H, 4 TIMES A DAY FOR 5 DAYS
     Route: 048
  5. ETOPOSIDE [Suspect]
     Active Substance: ETOPOSIDE
     Indication: Gestational trophoblastic tumour
     Dosage: 100 MG/M2, QD (DAY 1 TO 5, EVERY 3 WEEKS)
     Route: 042
  6. ETOPOSIDE [Suspect]
     Active Substance: ETOPOSIDE
     Dosage: 165 MG/M2, QD (DAY 1 TO 3, 3 WEEK INTERVAL)
     Route: 042
     Dates: start: 2010
  7. CISPLATIN [Suspect]
     Active Substance: CISPLATIN
     Indication: Gestational trophoblastic tumour
     Dosage: 50 MG/M2, Q3W (DAY 1-2)
     Route: 042
     Dates: start: 2010
  8. CISPLATIN [Suspect]
     Active Substance: CISPLATIN
     Dosage: 20 MG/M2, Q3W (DAY 1-5)
     Route: 042
  9. BLEOMYCIN [Suspect]
     Active Substance: BLEOMYCIN SULFATE
     Indication: Gestational trophoblastic tumour
     Dosage: 30000 IU,QW, DAY 2,9, AND 16, REPEATED EVERY 3 WEEKS
     Route: 042
  10. LEUCOVORIN CALCIUM [Concomitant]
     Active Substance: LEUCOVORIN CALCIUM
     Indication: Drug toxicity prophylaxis
     Dosage: 1 ML,QMO
     Route: 048
  11. DACTINOMYCIN [Concomitant]
     Active Substance: DACTINOMYCIN
     Indication: Product used for unknown indication
     Dosage: 5 MG,QMO, SCHEDULE REPEATED EVERY 4 WEEKS (ALTERNATIVELY EVERY3 WEEKS)
     Route: 042

REACTIONS (4)
  - Respiratory symptom [Unknown]
  - Drug resistance [Unknown]
  - Anaemia [Unknown]
  - Product use in unapproved indication [Unknown]
